FAERS Safety Report 21678274 (Version 1)
Quarter: 2022Q4

REPORT INFORMATION
  Report Type: Spontaneous
  Country: US (occurrence: US)
  Receive Date: 20221203
  Receipt Date: 20221203
  Transmission Date: 20230112
  Serious: Yes (Other)
  Sender: FDA-Public Use
  Company Number: US-Accord-289484

PATIENT
  Age: 16 Year
  Sex: Male

DRUGS (1)
  1. SERTRALINE [Suspect]
     Active Substance: SERTRALINE HYDROCHLORIDE
     Indication: Generalised anxiety disorder
     Dosage: 25 MG EVERY MORNING THEN INCREASED TO 50 MG EACH MORNING, REDUCED TO 25 MG AGAIN,THEN DISCONTINUED

REACTIONS (1)
  - Urinary retention [Recovered/Resolved]
